FAERS Safety Report 19216469 (Version 1)
Quarter: 2021Q2

REPORT INFORMATION
  Report Type: Spontaneous
  Country: US (occurrence: US)
  Receive Date: 20210504
  Receipt Date: 20210504
  Transmission Date: 20210717
  Serious: Yes (Hospitalization)
  Sender: FDA-Public Use
  Company Number: None

PATIENT
  Sex: Female

DRUGS (5)
  1. DEXILANT [Concomitant]
     Active Substance: DEXLANSOPRAZOLE
  2. PEPCID [Concomitant]
     Active Substance: FAMOTIDINE
  3. XELJANZ XR [Suspect]
     Active Substance: TOFACITINIB CITRATE
     Indication: PSORIATIC ARTHROPATHY
     Route: 048
     Dates: start: 20190614
  4. ELIQUIS [Concomitant]
     Active Substance: APIXABAN
  5. METOPROLOL TAR [Concomitant]
     Active Substance: METOPROLOL TARTRATE

REACTIONS (4)
  - Therapy interrupted [None]
  - Herpes zoster [None]
  - Condition aggravated [None]
  - Cardiac failure [None]
